FAERS Safety Report 6737059-2 (Version None)
Quarter: 2010Q2

REPORT INFORMATION
  Report Type: 
  Country: None (occurrence: None)
  Receive Date: 20100524
  Receipt Date: 20100518
  Transmission Date: 20101027
  Serious: Yes (Hospitalization)
  Sender: FDA-Public Use
  Company Number: BE-BIOGENIDEC-2010BI016541

PATIENT
  Age: 59 Year
  Sex: Female

DRUGS (6)
  1. AVONEX [Suspect]
     Indication: MULTIPLE SCLEROSIS
     Route: 030
     Dates: start: 20031001
  2. LEVOTHYROXINE SODIUM [Concomitant]
  3. ASAFLOW [Concomitant]
  4. TENORMIN [Concomitant]
  5. BROMAZEPAM [Concomitant]
  6. ZOLPIDEM [Concomitant]

REACTIONS (1)
  - EPILEPSY [None]
